FAERS Safety Report 8193060-6 (Version None)
Quarter: 2012Q1

REPORT INFORMATION
  Report Type: 
  Country: None (occurrence: None)
  Receive Date: 20120221
  Receipt Date: 20111025
  Transmission Date: 20120608
  Serious: No
  Sender: FDA-Public Use
  Company Number: 1000024958

PATIENT
  Age: 57 Year
  Sex: Female

DRUGS (7)
  1. VIIBRYD [Suspect]
     Indication: DEPRESSION
     Dosage: SEE IMAGE: ORAL
     Route: 048
     Dates: start: 20110701, end: 20110701
  2. VIIBRYD [Suspect]
     Indication: DEPRESSION
     Dosage: SEE IMAGE: ORAL
     Route: 048
     Dates: start: 20110701, end: 20110701
  3. VIIBRYD [Suspect]
     Indication: DEPRESSION
     Dosage: SEE IMAGE: ORAL
     Route: 048
     Dates: start: 20110701
  4. BACLOFEN [Concomitant]
  5. ELAVIL [Concomitant]
  6. XANAX [Concomitant]
  7. NORCO (HYDROCODONE, ACETAMINOPHEN) [Concomitant]

REACTIONS (2)
  - PARANOIA [None]
  - OVERDOSE [None]
